FAERS Safety Report 13060222 (Version 1)
Quarter: 2016Q4

REPORT INFORMATION
  Report Type: Spontaneous
  Country: FR (occurrence: FR)
  Receive Date: 20161223
  Receipt Date: 20161223
  Transmission Date: 20170207
  Serious: Yes (Other)
  Sender: FDA-Public Use
  Company Number: FR-BRISTOL-MYERS SQUIBB COMPANY-BMS-2016-108900

PATIENT
  Age: 52 Year
  Sex: Female

DRUGS (3)
  1. APRANAX                            /00256201/ [Suspect]
     Active Substance: NAPROXEN
     Indication: PAIN
     Dosage: UNK
     Route: 048
     Dates: start: 20160412, end: 20160416
  2. OPDIVO [Suspect]
     Active Substance: NIVOLUMAB
     Indication: KIDNEY ANGIOMYOLIPOMA
     Dosage: 280 MG, UNK
     Route: 042
     Dates: start: 20160216, end: 20160510
  3. ANTALNOX [Suspect]
     Active Substance: NAPROXEN SODIUM
     Indication: PAIN
     Dosage: UNK
     Route: 065
     Dates: start: 20160416, end: 20160426

REACTIONS (7)
  - Arthritis [Unknown]
  - Photosensitivity reaction [Recovering/Resolving]
  - Neoplasm malignant [Unknown]
  - Product use issue [Unknown]
  - Abdominal mass [Unknown]
  - Rheumatic disorder [Unknown]
  - Psoriasis [Unknown]

NARRATIVE: CASE EVENT DATE: 20160412
